FAERS Safety Report 8269108-7 (Version None)
Quarter: 2012Q2

REPORT INFORMATION
  Report Type: 
  Country: None (occurrence: None)
  Receive Date: 20120409
  Receipt Date: 20120327
  Transmission Date: 20120825
  Serious: Yes (Hospitalization)
  Sender: FDA-Public Use
  Company Number: JP-BAYER-2012-018019

PATIENT
  Age: 71 Year
  Sex: Male
  Weight: 59 kg

DRUGS (2)
  1. NEXAVAR [Suspect]
     Indication: HEPATIC NEOPLASM MALIGNANT
     Dosage: 400 MG, QD
     Route: 048
     Dates: start: 20120202, end: 20120205
  2. NOVOLIN R [Concomitant]
     Indication: DIABETES MELLITUS
     Dosage: DAILY DOSE 41 U
     Route: 058
     Dates: start: 20060511

REACTIONS (1)
  - HEPATIC ENCEPHALOPATHY [None]
